FAERS Safety Report 6819979-3 (Version None)
Quarter: 2010Q3

REPORT INFORMATION
  Report Type: 
  Country: None (occurrence: None)
  Receive Date: 20100707
  Receipt Date: 20100629
  Transmission Date: 20110219
  Serious: Yes (Hospitalization)
  Sender: FDA-Public Use
  Company Number: PL-ROCHE-712905

PATIENT
  Age: 92 Year
  Sex: Female

DRUGS (3)
  1. BONIVA [Suspect]
     Indication: OSTEOPOROSIS POSTMENOPAUSAL
     Dosage: START DATE AS 2010
     Route: 048
     Dates: end: 20100201
  2. ANTIHYPERTENSIVE NOS [Concomitant]
     Indication: HYPERTENSION
  3. ANTIDIABETIC DRUG NOS [Concomitant]
     Indication: DIABETES MELLITUS

REACTIONS (2)
  - BILE DUCT OBSTRUCTION [None]
  - LABORATORY TEST ABNORMAL [None]
